FAERS Safety Report 21482667 (Version 4)
Quarter: 2022Q4

REPORT INFORMATION
  Report Type: Report from Study
  Country: US (occurrence: US)
  Receive Date: 20221020
  Receipt Date: 20221227
  Transmission Date: 20230113
  Serious: Yes (Other)
  Sender: FDA-Public Use
  Company Number: US-ABBVIE-4160812

PATIENT
  Sex: Male

DRUGS (1)
  1. IMBRUVICA [Suspect]
     Active Substance: IBRUTINIB
     Indication: Chronic lymphocytic leukaemia
     Route: 048
     Dates: start: 20211207, end: 20221010

REACTIONS (14)
  - Cerebrovascular accident [Unknown]
  - Decreased activity [Unknown]
  - Gastrointestinal disorder [Unknown]
  - Overflow diarrhoea [Not Recovered/Not Resolved]
  - Memory impairment [Unknown]
  - Circadian rhythm sleep disorder [Unknown]
  - Faecaloma [Unknown]
  - Asthenia [Unknown]
  - Fatigue [Unknown]
  - COVID-19 [Unknown]
  - Constipation [Unknown]
  - Stress [Unknown]
  - Diarrhoea [Unknown]
  - Flatulence [Unknown]
